FAERS Safety Report 4486604-9 (Version None)
Quarter: 2004Q4

REPORT INFORMATION
  Report Type: 
  Country: None (occurrence: None)
  Receive Date: 20041027
  Receipt Date: 20041015
  Transmission Date: 20050328
  Serious: Yes (Hospitalization)
  Sender: FDA-Public Use
  Company Number: US-BRISTOL-MYERS SQUIBB COMPANY-12733515

PATIENT
  Age: 45 Year
  Sex: Female

DRUGS (9)
  1. CETUXIMAB [Suspect]
     Indication: SQUAMOUS CELL CARCINOMA
     Dosage: INITIAL TX DATE: 29-FEB-2000
     Route: 042
     Dates: start: 20000404, end: 20000404
  2. CISPLATIN [Suspect]
     Indication: SQUAMOUS CELL CARCINOMA
     Dosage: NO INFORMATION PROVIDED REGARDING CIPLATIN THERAPY
  3. RADIATION THERAPY [Suspect]
     Indication: SQUAMOUS CELL CARCINOMA
     Dates: end: 20000410
  4. FENTANYL [Concomitant]
     Route: 062
  5. RESTORIL [Concomitant]
  6. OXYCODONE [Concomitant]
  7. TIMENTIN [Concomitant]
  8. VANCOMYCIN HCL [Concomitant]
  9. AUGMENTIN '125' [Concomitant]

REACTIONS (1)
  - PYREXIA [None]
